FAERS Safety Report 4635035-7 (Version None)
Quarter: 2005Q2

REPORT INFORMATION
  Report Type: 
  Country: None (occurrence: None)
  Receive Date: 20050411
  Receipt Date: 20050328
  Transmission Date: 20051028
  Serious: Yes (Other)
  Sender: FDA-Public Use
  Company Number: 2005050317

PATIENT
  Age: 63 Year
  Sex: Male
  Weight: 83.9154 kg

DRUGS (4)
  1. VIAGRA [Suspect]
     Indication: ERECTILE DYSFUNCTION
     Dosage: 100 MG
  2. VICODIN [Suspect]
     Indication: BACK PAIN
     Dosage: ORAL
     Route: 048
     Dates: start: 19900101
  3. MORPHINE [Suspect]
     Indication: SURGERY
     Dosage: ORAL
     Route: 048
     Dates: start: 19900101
  4. IBUPROFEN [Concomitant]

REACTIONS (8)
  - BENIGN PROSTATIC HYPERPLASIA [None]
  - DRY MOUTH [None]
  - ERECTILE DYSFUNCTION [None]
  - NOCTURIA [None]
  - POLLAKIURIA [None]
  - POST PROCEDURAL PAIN [None]
  - SURGERY [None]
  - URINARY RETENTION [None]
